FAERS Safety Report 25524399 (Version 1)
Quarter: 2025Q3

REPORT INFORMATION
  Report Type: Other
  Country: CA (occurrence: CA)
  Receive Date: 20250707
  Receipt Date: 20250707
  Transmission Date: 20251021
  Serious: Yes (Life-Threatening, Hospitalization, Other)
  Sender: APOTEX
  Company Number: CA-PGRTD-001128160

PATIENT
  Sex: Female
  Weight: 3.108 kg

DRUGS (3)
  1. CITALOPRAM [Suspect]
     Active Substance: CITALOPRAM
     Indication: Product used for unknown indication
     Route: 048
  2. AMPICILLIN [Concomitant]
     Active Substance: AMPICILLIN
     Route: 065
  3. GENTAMICIN [Concomitant]
     Active Substance: GENTAMICIN
     Route: 065

REACTIONS (6)
  - Respiratory acidosis [Recovered/Resolved]
  - Endotracheal intubation [Recovered/Resolved]
  - Apnoea [Recovered/Resolved]
  - Pulmonary arterial hypertension [Recovered/Resolved]
  - Oxygen saturation decreased [Recovered/Resolved]
  - Respiratory distress [Recovered/Resolved]
